FAERS Safety Report 18580320 (Version 2)
Quarter: 2021Q3

REPORT INFORMATION
  Report Type: Report from Study
  Country: US (occurrence: US)
  Receive Date: 20201204
  Receipt Date: 20210728
  Transmission Date: 20211014
  Serious: Yes (Death, Other)
  Sender: FDA-Public Use
  Company Number: US-BAYER-2020-228578

PATIENT
  Age: 56 Year
  Sex: Male

DRUGS (3)
  1. STIVARGA [Suspect]
     Active Substance: REGORAFENIB
     Indication: RECTAL CANCER
     Dosage: DAILY DOSE 120 MG
     Route: 048
     Dates: start: 20201006, end: 202010
  2. STIVARGA [Suspect]
     Active Substance: REGORAFENIB
     Indication: RECTAL CANCER
     Dosage: DAILY DOSE 80 MG
     Route: 048
     Dates: start: 202010
  3. STIVARGA [Suspect]
     Active Substance: REGORAFENIB
     Indication: RECTAL CANCER
     Dosage: DAILY DOSE 40 MG
     Route: 048

REACTIONS (6)
  - Off label use [None]
  - Death [Fatal]
  - Fatigue [Recovering/Resolving]
  - Stomatitis [Recovering/Resolving]
  - Neuropathy peripheral [Not Recovered/Not Resolved]
  - Abdominal pain [Recovering/Resolving]

NARRATIVE: CASE EVENT DATE: 20201006
